FAERS Safety Report 5827108-8 (Version None)
Quarter: 2008Q3

REPORT INFORMATION
  Report Type: 
  Country: None (occurrence: None)
  Receive Date: 20080729
  Receipt Date: 20080729
  Transmission Date: 20090109
  Serious: Yes (Hospitalization)
  Sender: FDA-Public Use
  Company Number: None

PATIENT
  Sex: Male
  Weight: 83.6 kg

DRUGS (1)
  1. TEMOZOLOMIDE [Suspect]
     Dosage: 5100 MG

REACTIONS (9)
  - BRAIN CONTUSION [None]
  - BRAIN OEDEMA [None]
  - CEREBRAL HAEMORRHAGE TRAUMATIC [None]
  - CEREBRAL INFARCTION [None]
  - FALL [None]
  - HAEMATOMA [None]
  - HEART RATE INCREASED [None]
  - LACERATION [None]
  - SUBARACHNOID HAEMORRHAGE [None]
